FAERS Safety Report 19865173 (Version 6)
Quarter: 2022Q1

REPORT INFORMATION
  Report Type: Report from Study
  Country: US (occurrence: US)
  Receive Date: 20210921
  Receipt Date: 20220307
  Transmission Date: 20220423
  Serious: Yes (Hospitalization, Disabling, Other)
  Sender: FDA-Public Use
  Company Number: US-GILEAD-2021-0545614

PATIENT
  Age: 70 Year
  Sex: Male

DRUGS (80)
  1. ABATACEPT [Suspect]
     Active Substance: ABATACEPT
     Indication: COVID-19
     Dosage: UNK, ONCE
     Route: 042
     Dates: start: 20210809
  2. PLACEBO [Suspect]
     Active Substance: UNSPECIFIED INGREDIENT
     Indication: COVID-19
     Dosage: UNK, ONCE
     Route: 042
     Dates: start: 20210809
  3. REMDESIVIR [Suspect]
     Active Substance: REMDESIVIR
     Indication: COVID-19
     Dosage: UNK, QD
     Route: 042
     Dates: start: 20210809
  4. ASPIRIN [Concomitant]
     Active Substance: ASPIRIN
  5. ALBUMIN HUMAN [Concomitant]
     Active Substance: ALBUMIN HUMAN
  6. AMIODARONE [Concomitant]
     Active Substance: AMIODARONE
  7. BISACODYL [Concomitant]
     Active Substance: BISACODYL
  8. DEXAMETHASONE [Concomitant]
     Active Substance: DEXAMETHASONE
  9. DEXMEDETOMIDINE [Concomitant]
     Active Substance: DEXMEDETOMIDINE
  10. ESOMEPRAZOLE [Concomitant]
     Active Substance: ESOMEPRAZOLE
  11. FAMOTIDINE [Concomitant]
     Active Substance: FAMOTIDINE
  12. FENTANYL [Concomitant]
     Active Substance: FENTANYL
  13. FLUCONAZOLE [Concomitant]
     Active Substance: FLUCONAZOLE
  14. FUROSEMIDE [Concomitant]
     Active Substance: FUROSEMIDE
  15. GABAPENTIN [Concomitant]
     Active Substance: GABAPENTIN
  16. DEXTROSE [Concomitant]
     Active Substance: DEXTROSE
  17. HEPARIN SODIUM [Concomitant]
     Active Substance: HEPARIN SODIUM
  18. INSULIN NOS [Concomitant]
     Active Substance: INSULIN NOS
  19. INULA HELENIUM ROOT;SENNA ALEXANDRINA LEAF [Concomitant]
  20. LEVALBUTEROL [Concomitant]
     Active Substance: LEVALBUTEROL
  21. LORAZEPAM [Concomitant]
     Active Substance: LORAZEPAM
  22. POLYETHYLENE GLYCOL 3350 [Concomitant]
     Active Substance: POLYETHYLENE GLYCOL 3350
  23. MAGNESIUM SULFATE [Concomitant]
     Active Substance: MAGNESIUM SULFATE
  24. METOLAZONE [Concomitant]
     Active Substance: METOLAZONE
  25. METOPROLOL [Concomitant]
     Active Substance: METOPROLOL
  26. MICAFUNGIN [Concomitant]
     Active Substance: MICAFUNGIN
  27. MIDAZOLAM [Concomitant]
     Active Substance: MIDAZOLAM
  28. NALOXONE [Concomitant]
     Active Substance: NALOXONE
  29. NOREPINEPHRINE [Concomitant]
     Active Substance: NOREPINEPHRINE
  30. ACETAMINOPHEN [Concomitant]
     Active Substance: ACETAMINOPHEN
  31. PIPERACILLIN SODIUM\TAZOBACTAM SODIUM [Concomitant]
     Active Substance: PIPERACILLIN SODIUM\TAZOBACTAM SODIUM
  32. PIPERACILLIN AND TAZOBACTAM [Concomitant]
     Active Substance: PIPERACILLIN SODIUM\TAZOBACTAM SODIUM
  33. POTASSIUM CHLORIDE [Concomitant]
     Active Substance: POTASSIUM CHLORIDE
  34. PREDNISONE [Concomitant]
     Active Substance: PREDNISONE
  35. QUETIAPINE FUMARATE [Concomitant]
     Active Substance: QUETIAPINE FUMARATE
  36. SEVELAMER [Concomitant]
     Active Substance: SEVELAMER
  37. TACROLIMUS [Concomitant]
     Active Substance: TACROLIMUS
  38. THIAMINE [Concomitant]
     Active Substance: THIAMINE
  39. TOCILIZUMAB [Concomitant]
     Active Substance: TOCILIZUMAB
  40. VALGANCICLOVIR [Concomitant]
     Active Substance: VALGANCICLOVIR
  41. VALPROIC ACID [Concomitant]
     Active Substance: VALPROIC ACID
  42. VANCOMYCIN [Concomitant]
     Active Substance: VANCOMYCIN
  43. CALCIUM CHLORIDE\POTASSIUM CHLORIDE\SODIUM LACTATE [Concomitant]
     Active Substance: CALCIUM CHLORIDE\POTASSIUM CHLORIDE\SODIUM LACTATE
  44. CEFAZOLIN [Concomitant]
     Active Substance: CEFAZOLIN
  45. CHLORHEXIDINE [Concomitant]
     Active Substance: CHLORHEXIDINE
  46. COVID-19 VACCINE [Concomitant]
  47. ETOMIDATE [Concomitant]
     Active Substance: ETOMIDATE
  48. GANCICLOVIR [Concomitant]
     Active Substance: GANCICLOVIR
  49. INSULIN GLARGINE [Concomitant]
     Active Substance: INSULIN GLARGINE
  50. MELATONIN [Concomitant]
     Active Substance: MELATONIN
  51. MINERALS\VITAMINS [Concomitant]
     Active Substance: MINERALS\VITAMINS
  52. QUETIAPINE [Concomitant]
     Active Substance: QUETIAPINE
  53. ROCURONIUM [Concomitant]
     Active Substance: ROCURONIUM BROMIDE
  54. SODIUM CHLORIDE [Concomitant]
     Active Substance: SODIUM CHLORIDE
  55. TETRACAINE [Concomitant]
     Active Substance: TETRACAINE
  56. TROPICAMIDE [Concomitant]
     Active Substance: TROPICAMIDE
  57. CLONIDINE HYDROCHLORIDE [Concomitant]
     Active Substance: CLONIDINE HYDROCHLORIDE
  58. HYDROMORPHONE [Concomitant]
     Active Substance: HYDROMORPHONE
  59. ISAVUCONAZONIUM SULFATE [Concomitant]
     Active Substance: ISAVUCONAZONIUM SULFATE
  60. MEROPENEM [Concomitant]
     Active Substance: MEROPENEM
  61. TOBRAMYCIN [Concomitant]
     Active Substance: TOBRAMYCIN
  62. APIXABAN [Concomitant]
     Active Substance: APIXABAN
  63. ACETYLCYSTEINE [Concomitant]
     Active Substance: ACETYLCYSTEINE
  64. FLUMAZENIL [Concomitant]
     Active Substance: FLUMAZENIL
  65. GLUCAGON [Concomitant]
     Active Substance: GLUCAGON
  66. LIDOCAINE [Concomitant]
     Active Substance: LIDOCAINE
  67. MYCOPHENOLATE MOFETIL [Concomitant]
     Active Substance: MYCOPHENOLATE MOFETIL
  68. PHENYLEPHRINE [Concomitant]
     Active Substance: PHENYLEPHRINE HYDROCHLORIDE
  69. ALBUTEROL SULFATE [Concomitant]
     Active Substance: ALBUTEROL SULFATE
  70. TRAZODONE [Concomitant]
     Active Substance: TRAZODONE HYDROCHLORIDE
  71. AVIBACTAM SODIUM\CEFTAZIDIME [Concomitant]
     Active Substance: AVIBACTAM SODIUM\CEFTAZIDIME
  72. CARBOXYMETHYLCELLULOSE [Concomitant]
     Active Substance: CARBOXYMETHYLCELLULOSE
  73. CINACALCET [Concomitant]
     Active Substance: CINACALCET
  74. FERROUS SULFATE [Concomitant]
     Active Substance: FERROUS SULFATE
  75. INSULIN LISPRO [Concomitant]
     Active Substance: INSULIN LISPRO
  76. TAMSULOSIN [Concomitant]
     Active Substance: TAMSULOSIN
  77. VORICONAZOLE [Concomitant]
     Active Substance: VORICONAZOLE
  78. BUMETANIDE [Concomitant]
     Active Substance: BUMETANIDE
  79. CHLOROTHIAZIDE [Concomitant]
     Active Substance: CHLOROTHIAZIDE
  80. NITAZOXANIDE [Concomitant]
     Active Substance: NITAZOXANIDE

REACTIONS (5)
  - Encephalopathy [Recovered/Resolved]
  - Bacteraemia [Not Recovered/Not Resolved]
  - Fungaemia [Recovering/Resolving]
  - Cytomegalovirus viraemia [Not Recovered/Not Resolved]
  - Opportunistic infection [Recovered/Resolved]

NARRATIVE: CASE EVENT DATE: 20210812
